FAERS Safety Report 4909082-1 (Version None)
Quarter: 2006Q1

REPORT INFORMATION
  Report Type: 
  Country: None (occurrence: None)
  Receive Date: 20060213
  Receipt Date: 20060131
  Transmission Date: 20060701
  Serious: Yes (Death, Hospitalization, Other)
  Sender: FDA-Public Use
  Company Number: CZ-ABBOTT-06P-217-0324333-00

PATIENT
  Sex: Male

DRUGS (2)
  1. CONVULEX SYRUP [Suspect]
     Indication: CONVULSION
  2. BENZODIAZEPINE DERIVATIVES [Concomitant]
     Indication: CONVULSION

REACTIONS (13)
  - CARDIAC FAILURE [None]
  - GRAND MAL CONVULSION [None]
  - HEPATIC FAILURE [None]
  - HYPERAMMONAEMIA [None]
  - HYPERLACTACIDAEMIA [None]
  - HYPERPYREXIA [None]
  - HYPERURICAEMIA [None]
  - HYPOGLYCAEMIA [None]
  - METABOLIC ACIDOSIS [None]
  - MULTI-ORGAN FAILURE [None]
  - RESPIRATORY TRACT INFECTION [None]
  - RHABDOMYOLYSIS [None]
  - SHOCK [None]
